FAERS Safety Report 8616678-2 (Version None)
Quarter: 2012Q3

REPORT INFORMATION
  Report Type: 
  Country: None (occurrence: None)
  Receive Date: 20120823
  Receipt Date: 20120817
  Transmission Date: 20120928
  Serious: Yes (Hospitalization)
  Sender: FDA-Public Use
  Company Number: IL-MERCK-1204USA01384

PATIENT

DRUGS (8)
  1. REBETOL [Suspect]
     Indication: HEPATITIS C
     Dosage: 3 DF, UNK
     Route: 048
     Dates: start: 20111221, end: 20120122
  2. SIMVASTATIN [Suspect]
     Indication: HEPATITIS C
     Dosage: UNK
     Route: 048
     Dates: start: 20120117
  3. REBETOL [Suspect]
     Dosage: 3 DF, UNK
     Route: 048
     Dates: start: 20120128
  4. PEG-INTRON [Suspect]
     Dosage: 150 MCG PER 0.5 ML
     Route: 058
     Dates: start: 20111220
  5. MK-5172 [Suspect]
     Indication: HEPATITIS C
     Dosage: 400 MG, QD
     Route: 048
     Dates: start: 20111220, end: 20120311
  6. REBETOL [Suspect]
     Dosage: 3 DF, UNK
     Route: 048
     Dates: start: 20120124, end: 20120126
  7. REBETOL [Suspect]
     Dosage: 3 UNK, ONCE
     Route: 048
     Dates: start: 20111220, end: 20111220
  8. PEG-INTRON [Suspect]
     Indication: HEPATITIS C

REACTIONS (1)
  - SEGMENTED HYALINISING VASCULITIS [None]
